FAERS Safety Report 9999293 (Version 1)
Quarter: 2014Q1

REPORT INFORMATION
  Report Type: Spontaneous
  Country: US (occurrence: None)
  Receive Date: 20140311
  Receipt Date: 20140311
  Transmission Date: 20141002
  Serious: Yes (Life-Threatening, Hospitalization, Disabling)
  Sender: FDA-Public Use
  Company Number: None

PATIENT
  Age: 37 Year
  Sex: Male
  Weight: 90.72 kg

DRUGS (2)
  1. ANDRODERM PATCH 4MG/24HR [Suspect]
     Indication: BLOOD TESTOSTERONE DECREASED
     Dosage: 1 PATCH AND 2 PUMPS/DAY
  2. ANDRODERM 1.62% GEL [Suspect]

REACTIONS (5)
  - Thrombosis [None]
  - Deep vein thrombosis [None]
  - Pulmonary embolism [None]
  - Myocardial infarction [None]
  - Gynaecomastia [None]
